FAERS Safety Report 11348641 (Version 2)
Quarter: 2017Q4

REPORT INFORMATION
  Report Type: Report from Study
  Country: JP (occurrence: JP)
  Receive Date: 20150806
  Receipt Date: 20171018
  Transmission Date: 20180320
  Serious: Yes (Hospitalization, Other)
  Sender: FDA-Public Use
  Company Number: JP-INCYTE CORPORATION-2015IN000736

PATIENT

DRUGS (5)
  1. JAKAVI [Suspect]
     Active Substance: RUXOLITINIB
     Dosage: 10 MG, BID
     Route: 048
  2. JAKAVI [Suspect]
     Active Substance: RUXOLITINIB
     Dosage: 5 MG, BID
     Route: 048
  3. JAKAVI [Suspect]
     Active Substance: RUXOLITINIB
     Indication: MYELOFIBROSIS
     Dosage: 20 MG, BID
     Route: 048
     Dates: start: 20141113, end: 20150201
  4. JAKAVI [Suspect]
     Active Substance: RUXOLITINIB
     Dosage: 15 MG, BID
     Route: 048
  5. JAKAVI [Suspect]
     Active Substance: RUXOLITINIB
     Dosage: 5 MG, BID
     Route: 048

REACTIONS (4)
  - Pneumonia [Unknown]
  - Herpes zoster [Recovering/Resolving]
  - Splenomegaly [Unknown]
  - Platelet count decreased [Recovered/Resolved]

NARRATIVE: CASE EVENT DATE: 20150201
